FAERS Safety Report 9238350 (Version 1)
Quarter: 2013Q1

REPORT INFORMATION
  Report Type: Spontaneous
  Country: US (occurrence: None)
  Receive Date: 20121106
  Receipt Date: 20121106
  Transmission Date: 20140127
  Serious: No
  Sender: FDA-Public Use
  Company Number: 1000037398

PATIENT
  Age: 71 Year
  Sex: Female

DRUGS (7)
  1. DALIRESP [Suspect]
     Indication: EMPHYSEMA
     Dosage: 500MCG (500 MCG, 1 IN 1D)
     Dates: start: 20120724
  2. PREDNISONE (PREDNISONE) [Concomitant]
  3. ADVAIR (SERETIDE) (SERETIDE) [Concomitant]
  4. SPIRIVA (TIOTROPIUM) (TIOTROPIUM) [Concomitant]
  5. ALBUTEROL (ALBUTEROL) (ALBUTEROL) [Concomitant]
  6. XOPENEX (LEVOSALBUTAMOL HYDROCHLORIDE) (LEVOSALBUTAMOL HYDROCHLORIDE) [Concomitant]
  7. OXYGEN (OXYGEN) (OXYGEN) [Concomitant]

REACTIONS (1)
  - Dyspnoea [None]
